FAERS Safety Report 5491705-2 (Version None)
Quarter: 2007Q4

REPORT INFORMATION
  Report Type: 
  Country: None (occurrence: None)
  Receive Date: 20071018
  Receipt Date: 20071018
  Transmission Date: 20080405
  Serious: Yes (Hospitalization)
  Sender: FDA-Public Use
  Company Number: None

PATIENT
  Age: 56 Year
  Sex: Female

DRUGS (4)
  1. HEPARIN [Suspect]
     Dosage: 5000 UNITS SQ Q8?
     Route: 058
  2. MANNITOL [Concomitant]
  3. LABETALOL HCL [Concomitant]
  4. PROPOFOL [Concomitant]

REACTIONS (3)
  - ACTIVATED PARTIAL THROMBOPLASTIN TIME PROLONGED [None]
  - CEREBRAL HAEMORRHAGE [None]
  - THROMBOSIS [None]
